FAERS Safety Report 7686987-2 (Version None)
Quarter: 2011Q3

REPORT INFORMATION
  Report Type: 
  Country: None (occurrence: None)
  Receive Date: 20110816
  Receipt Date: 20110815
  Transmission Date: 20111222
  Serious: No
  Sender: FDA-Public Use
  Company Number: US-PFIZER INC-2011187517

PATIENT
  Sex: Female

DRUGS (2)
  1. ADVIL LIQUI-GELS [Suspect]
     Dosage: UNK
     Route: 048
  2. ADVIL LIQUI-GELS [Suspect]
     Dosage: 6 TO 8 TABLETS DAILY
     Route: 048
     Dates: start: 20110801

REACTIONS (3)
  - DRY MOUTH [None]
  - CHAPPED LIPS [None]
  - GLOSSODYNIA [None]
